FAERS Safety Report 9954440 (Version 1)
Quarter: 2014Q1

REPORT INFORMATION
  Report Type: Spontaneous
  Country: FR (occurrence: FR)
  Receive Date: 20140304
  Receipt Date: 20140304
  Transmission Date: 20141002
  Serious: Yes (Hospitalization)
  Sender: FDA-Public Use
  Company Number: PHHY2014FR026194

PATIENT
  Age: 72 Year
  Sex: Male

DRUGS (15)
  1. CERTICAN [Suspect]
     Indication: IMMUNOSUPPRESSION
     Dosage: UNK
     Route: 048
     Dates: start: 201306
  2. REPAGLINIDE [Concomitant]
     Dosage: UNK
  3. NOVORAPID [Concomitant]
     Dosage: UNK
  4. LIPANTHYL [Concomitant]
     Dosage: UNK
  5. LEVOTHYROX [Concomitant]
     Dosage: UNK
  6. LANTUS [Concomitant]
     Dosage: UNK
  7. JANUVIA [Concomitant]
     Dosage: UNK
  8. GLIMEPIRIDE [Concomitant]
     Dosage: UNK
  9. FOSINOPRIL [Concomitant]
     Dosage: UNK
  10. CELLCEPT [Concomitant]
     Dosage: UNK
  11. BISOCE [Concomitant]
     Dosage: UNK
  12. ZOLPIDEM [Concomitant]
     Dosage: UNK
  13. VENLAFAXINE [Concomitant]
     Dosage: UNK
  14. NEFOPAM [Concomitant]
     Dosage: UNK
  15. DAFALGAN [Concomitant]
     Dosage: UNK

REACTIONS (1)
  - Arthritis [Recovering/Resolving]
